FAERS Safety Report 19084990 (Version 1)
Quarter: 2021Q2

REPORT INFORMATION
  Report Type: Report from Study
  Country: US (occurrence: US)
  Receive Date: 20210401
  Receipt Date: 20210401
  Transmission Date: 20210717
  Serious: No
  Sender: FDA-Public Use
  Company Number: US-RETROPHIN, INC.-2020RTN00093

PATIENT
  Age: 2 Month
  Sex: Male
  Weight: 3.33 kg

DRUGS (4)
  1. URSODEOXYCHOLIC ACID [Concomitant]
     Active Substance: URSODIOL
     Dosage: 25 MG, 2X/DAY
     Route: 048
  2. HYTONE [Concomitant]
     Active Substance: HYDROCORTISONE
     Dosage: UNK, 2X/DAY FOR NO LONGER THAN TWO WEEKS
  3. DEKAS [Concomitant]
     Dosage: 1 ML, 1X/DAY
     Route: 048
  4. CHOLIC ACID [Suspect]
     Active Substance: CHOLIC ACID
     Indication: CEREBROHEPATORENAL SYNDROME
     Dosage: 50 MG, 1X/DAY
     Route: 048
     Dates: start: 20200815

REACTIONS (2)
  - Agitation [Recovering/Resolving]
  - Weight gain poor [Unknown]

NARRATIVE: CASE EVENT DATE: 20200815
